FAERS Safety Report 9278565 (Version 1)
Quarter: 2013Q2

REPORT INFORMATION
  Report Type: Spontaneous
  Country: US (occurrence: None)
  Receive Date: 20130506
  Receipt Date: 20130506
  Transmission Date: 20140414
  Serious: Yes (Life-Threatening, Other)
  Sender: FDA-Public Use
  Company Number: None

PATIENT
  Age: 50 Year
  Sex: Female
  Weight: 90.72 kg

DRUGS (1)
  1. FENTANYL 50 MCG/HR UNKNOWN [Suspect]

REACTIONS (3)
  - Lethargy [None]
  - Inadequate analgesia [None]
  - Product substitution issue [None]
